FAERS Safety Report 9382177 (Version 1)
Quarter: 2013Q3

REPORT INFORMATION
  Report Type: Spontaneous
  Country: US (occurrence: US)
  Receive Date: 20130703
  Receipt Date: 20130703
  Transmission Date: 20140515
  Serious: Yes (Hospitalization)
  Sender: FDA-Public Use
  Company Number: US-DYAX CORP.-2013DX000129

PATIENT
  Age: 44 Year
  Sex: Female
  Weight: 145.28 kg

DRUGS (3)
  1. KALBITOR [Suspect]
     Indication: HEREDITARY ANGIOEDEMA
     Route: 058
     Dates: start: 201303, end: 201303
  2. VICODIN [Concomitant]
     Indication: PRODUCT USED FOR UNKNOWN INDICATION
     Route: 065
  3. MORPHINE [Concomitant]
     Indication: PRODUCT USED FOR UNKNOWN INDICATION
     Route: 065

REACTIONS (3)
  - Dehydration [Recovered/Resolved]
  - Pain [Recovered/Resolved]
  - Drug ineffective for unapproved indication [Unknown]
